FAERS Safety Report 8458685-9 (Version None)
Quarter: 2012Q2

REPORT INFORMATION
  Report Type: 
  Country: None (occurrence: None)
  Receive Date: 20120615
  Receipt Date: 20120604
  Transmission Date: 20120825
  Serious: Yes (Other)
  Sender: FDA-Public Use
  Company Number: 2011MA004518

PATIENT
  Age: 72 Year
  Sex: Female
  Weight: 77.1115 kg

DRUGS (23)
  1. AMOX-CLAV [Concomitant]
  2. METOPROLOL TARTRATE [Concomitant]
  3. NORVASC [Concomitant]
  4. SINEMET [Concomitant]
  5. LIPITOR [Concomitant]
  6. SIMVASTATIN [Concomitant]
  7. AVANDIA [Concomitant]
  8. DETROL LA [Concomitant]
  9. OXYBUTYNIN [Concomitant]
  10. RITALIN [Concomitant]
  11. KEPPRA [Concomitant]
  12. ARICEPT [Concomitant]
  13. LEXAPRO [Concomitant]
  14. LISINOPRIL AND HYDROCHLOROTHIAZIDE [Concomitant]
  15. HUMALOG [Concomitant]
  16. METHYLDOPA [Concomitant]
  17. LISINOPRIL [Concomitant]
  18. METFORMIN HCL [Concomitant]
  19. NEXIUM [Concomitant]
  20. METOCLOPRAMIDE [Suspect]
     Indication: GASTROOESOPHAGEAL REFLUX DISEASE
     Dosage: 10 MG;HS;PO
     Route: 048
     Dates: start: 20060123, end: 20100201
  21. CYMBALTA [Concomitant]
  22. ALPRAZOLAM [Concomitant]
  23. OMEPRAZOLE [Concomitant]

REACTIONS (27)
  - ECONOMIC PROBLEM [None]
  - ANXIETY [None]
  - PAIN [None]
  - TARDIVE DYSKINESIA [None]
  - AKATHISIA [None]
  - FRACTURE [None]
  - GAIT DISTURBANCE [None]
  - ANAEMIA [None]
  - EMOTIONAL DISORDER [None]
  - VOMITING [None]
  - OEDEMA PERIPHERAL [None]
  - ACTIVITIES OF DAILY LIVING IMPAIRED [None]
  - HYPERTENSION [None]
  - EXTRAPYRAMIDAL DISORDER [None]
  - DYSPHAGIA [None]
  - NAUSEA [None]
  - CEREBROVASCULAR ACCIDENT [None]
  - CONFUSIONAL STATE [None]
  - FALL [None]
  - TREMOR [None]
  - SLEEP APNOEA SYNDROME [None]
  - MEMORY IMPAIRMENT [None]
  - SUBSTANCE-INDUCED PSYCHOTIC DISORDER [None]
  - INJURY [None]
  - DEMENTIA [None]
  - MUSCLE RIGIDITY [None]
  - AFFECTIVE DISORDER [None]
